FAERS Safety Report 8943613 (Version 1)
Quarter: 2012Q4

REPORT INFORMATION
  Report Type: 
  Country: PL (occurrence: PL)
  Receive Date: 20121204
  Receipt Date: 20121204
  Transmission Date: 20130627
  Serious: No
  Sender: FDA-Public Use
  Company Number: PL-JNJFOC-20121112397

PATIENT
  Age: 66 Year
  Sex: Female

DRUGS (13)
  1. USTEKINUMAB [Suspect]
     Indication: PSORIASIS
     Route: 058
     Dates: start: 201205
  2. USTEKINUMAB [Suspect]
     Indication: PSORIASIS
     Route: 058
     Dates: start: 201003, end: 201201
  3. INFLIXIMAB, RECOMBINANT [Suspect]
     Indication: PSORIASIS
     Route: 042
     Dates: start: 200806, end: 200905
  4. ADALIMUMAB [Suspect]
     Indication: PSORIASIS
     Route: 058
     Dates: start: 200906, end: 201001
  5. SALICYLIC ACID [Concomitant]
     Indication: PRODUCT USED FOR UNKNOWN INDICATION
     Route: 061
  6. ANTIBIOTICS [Concomitant]
     Indication: URINARY TRACT INFECTION
     Route: 065
  7. CIGNOLIN [Concomitant]
     Indication: PRODUCT USED FOR UNKNOWN INDICATION
     Route: 061
  8. BIRCH TAR [Concomitant]
     Indication: PRODUCT USED FOR UNKNOWN INDICATION
     Route: 061
  9. GLUCOCORTICOSTEROIDS [Concomitant]
     Indication: PRODUCT USED FOR UNKNOWN INDICATION
     Route: 061
  10. ALL OTHER THERAPEUTIC PRODUCTS [Concomitant]
     Indication: PRODUCT USED FOR UNKNOWN INDICATION
     Dosage: 300 irradiations
     Route: 065
  11. METHOTREXATE [Concomitant]
     Indication: PSORIASIS
     Dosage: over 2 g
     Route: 065
  12. CYCLOSPORINE A [Concomitant]
     Indication: PRODUCT USED FOR UNKNOWN INDICATION
     Dosage: 3-5 mg/kg 3 cycles over3 months
     Route: 003
  13. ALL OTHER NON-THERAPEUTIC PRODUCTS [Concomitant]
     Indication: PRODUCT USED FOR UNKNOWN INDICATION
     Route: 065

REACTIONS (2)
  - Connective tissue disorder [Recovering/Resolving]
  - Urinary tract infection [Recovered/Resolved]
